FAERS Safety Report 7619278-6 (Version None)
Quarter: 2011Q3

REPORT INFORMATION
  Report Type: 
  Country: None (occurrence: None)
  Receive Date: 20110718
  Receipt Date: 20110707
  Transmission Date: 20111222
  Serious: Yes (Hospitalization, Other)
  Sender: FDA-Public Use
  Company Number: US-ASTRAZENECA-2011SE27015

PATIENT
  Age: 38 Year
  Sex: Female

DRUGS (2)
  1. SEROQUEL [Suspect]
     Indication: BIPOLAR DISORDER
     Route: 048
     Dates: start: 20020101
  2. SEROQUEL [Suspect]
     Route: 048

REACTIONS (7)
  - DEPRESSION [None]
  - FLUID REPLACEMENT [None]
  - IMPAIRED WORK ABILITY [None]
  - HALLUCINATION [None]
  - PAIN [None]
  - HEPATIC FAILURE [None]
  - DRUG DOSE OMISSION [None]
